FAERS Safety Report 6680428-X (Version None)
Quarter: 2010Q2

REPORT INFORMATION
  Report Type: 
  Country: None (occurrence: None)
  Receive Date: 20100414
  Receipt Date: 20100330
  Transmission Date: 20101027
  Serious: Yes (Hospitalization, Other)
  Sender: FDA-Public Use
  Company Number: CH-BIOGENIDEC-2010BI001833

PATIENT
  Age: 45 Year
  Sex: Female
  Weight: 49 kg

DRUGS (2)
  1. TYSABRI [Suspect]
     Indication: MULTIPLE SCLEROSIS
     Route: 042
     Dates: start: 20070601, end: 20091201
  2. SOLU-MEDROL [Concomitant]
     Indication: IMMUNE RECONSTITUTION SYNDROME
     Dates: start: 20100222

REACTIONS (4)
  - BLOOD BRAIN BARRIER DEFECT [None]
  - IMMUNE RECONSTITUTION SYNDROME [None]
  - MULTIPLE SCLEROSIS RELAPSE [None]
  - PROGRESSIVE MULTIFOCAL LEUKOENCEPHALOPATHY [None]
